FAERS Safety Report 23662054 (Version 1)
Quarter: 2024Q1

REPORT INFORMATION
  Report Type: Spontaneous
  Country: US (occurrence: US)
  Receive Date: 20240322
  Receipt Date: 20240322
  Transmission Date: 20240409
  Serious: Yes (Other)
  Sender: FDA-Public Use
  Company Number: US-STRIDES ARCOLAB LIMITED-2023SP017195

PATIENT
  Sex: Male

DRUGS (9)
  1. OXYCODONE [Suspect]
     Active Substance: OXYCODONE\OXYCODONE HYDROCHLORIDE
     Indication: Pain
     Dosage: 80 MILLIGRAM DAILY
     Route: 065
  2. METHADONE [Suspect]
     Active Substance: METHADONE HYDROCHLORIDE
     Indication: Pain
     Dosage: 30 MILLIGRAM DAILY
     Route: 065
  3. METHADONE [Suspect]
     Active Substance: METHADONE HYDROCHLORIDE
     Dosage: UNK, DOSE REDUCED
     Route: 065
  4. ALPRAZOLAM [Concomitant]
     Active Substance: ALPRAZOLAM
     Indication: Anxiety
     Dosage: 2 MILLIGRAM, 0.25 DAY
     Route: 065
  5. HERBALS\MITRAGYNINE [Concomitant]
     Active Substance: HERBALS\MITRAGYNINE
     Indication: Pain
     Dosage: 2-3 TABLESPOONS OF POWDER THREE TIMES IN A DAY
     Route: 065
  6. KETAMINE [Concomitant]
     Active Substance: KETAMINE
     Indication: Induction of anaesthesia
     Dosage: UNK
     Route: 065
  7. DEXMEDETOMIDINE [Concomitant]
     Active Substance: DEXMEDETOMIDINE
     Indication: Induction of anaesthesia
     Dosage: 0.6 MICROGRAM/KILOGRAM PER MIN
     Route: 065
  8. BUPIVACAINE [Concomitant]
     Active Substance: BUPIVACAINE
     Indication: Induction of anaesthesia
     Dosage: UNK, 0.5 % INFUSION
     Route: 065
  9. ROPIVACAINE [Concomitant]
     Active Substance: ROPIVACAINE
     Indication: Induction of anaesthesia
     Dosage: 8 MILLILITER, 0.2 % PER HOUR
     Route: 065

REACTIONS (1)
  - Drug dependence [Unknown]
